FAERS Safety Report 7259665-1 (Version None)
Quarter: 2011Q1

REPORT INFORMATION
  Report Type: 
  Country: None (occurrence: None)
  Receive Date: 20110130
  Receipt Date: 20101001
  Transmission Date: 20110831
  Serious: No
  Sender: FDA-Public Use
  Company Number: US-ABBOTT-10P-163-0648559-00

PATIENT
  Age: 21 Year
  Sex: Female

DRUGS (6)
  1. HUMIRA [Suspect]
     Indication: CROHN'S DISEASE
     Dates: start: 20100521
  2. CYMBALTA [Concomitant]
     Indication: DEPRESSION
  3. ABILIFY [Concomitant]
     Indication: BIPOLAR DISORDER
  4. PREDNISONE [Concomitant]
     Indication: CROHN'S DISEASE
  5. COGENTIN [Concomitant]
     Indication: BIPOLAR DISORDER
  6. IMURAN [Concomitant]
     Indication: CROHN'S DISEASE

REACTIONS (4)
  - DRUG DOSE OMISSION [None]
  - WRONG TECHNIQUE IN DRUG USAGE PROCESS [None]
  - PAIN [None]
  - INJECTION SITE PAIN [None]
